FAERS Safety Report 23516371 (Version 1)
Quarter: 2024Q1

REPORT INFORMATION
  Report Type: Spontaneous
  Country: CN (occurrence: CN)
  Receive Date: 20240213
  Receipt Date: 20240213
  Transmission Date: 20240410
  Serious: Yes (Other)
  Sender: FDA-Public Use
  Company Number: None

PATIENT
  Age: 14 Year
  Sex: Female

DRUGS (20)
  1. LINEZOLID [Suspect]
     Active Substance: LINEZOLID
     Indication: Meningitis tuberculous
     Dosage: 0.6 GRAM, QD EVERY 1 DAY
     Route: 065
  2. LINEZOLID [Suspect]
     Active Substance: LINEZOLID
     Indication: Pulmonary tuberculosis
  3. CLOFAZIMINE [Concomitant]
     Active Substance: CLOFAZIMINE
     Indication: Meningitis tuberculous
     Dosage: 0.1 GRAM, QD EVERY 1 DAY
     Route: 048
  4. CLOFAZIMINE [Concomitant]
     Active Substance: CLOFAZIMINE
     Indication: Pulmonary tuberculosis
  5. CYCLOSERINE [Concomitant]
     Active Substance: CYCLOSERINE
     Indication: Meningitis tuberculous
     Dosage: 0.5 GRAM, QD EVERY 1 DAY
     Route: 048
  6. CYCLOSERINE [Concomitant]
     Active Substance: CYCLOSERINE
     Indication: Pulmonary tuberculosis
  7. ETHAMBUTOL [Concomitant]
     Active Substance: ETHAMBUTOL HYDROCHLORIDE
     Indication: Pulmonary tuberculosis
     Dosage: 0.75 GRAM, QD EVERY 1 DAY
     Route: 048
  8. ETHAMBUTOL [Concomitant]
     Active Substance: ETHAMBUTOL HYDROCHLORIDE
     Indication: Meningitis tuberculous
  9. ISONIAZID [Concomitant]
     Active Substance: ISONIAZID
     Indication: Pulmonary tuberculosis
     Dosage: 0.3 GRAM, QD EVERY 1 DAY
     Route: 048
  10. ISONIAZID [Concomitant]
     Active Substance: ISONIAZID
     Indication: Meningitis tuberculous
     Dosage: 0.6 GRAM, QD HIGH DOSE) (EVERY 1 DAY)
     Route: 065
  11. PREDNISONE ACETATE [Concomitant]
     Active Substance: PREDNISONE ACETATE
     Indication: Pulmonary tuberculosis
     Dosage: 30 MILLIGRAM, QD EVERY 1 DAY)
     Route: 048
  12. PREDNISONE ACETATE [Concomitant]
     Active Substance: PREDNISONE ACETATE
     Indication: Meningitis tuberculous
     Dosage: UNK (TAPERED DOSE)
     Route: 065
  13. PROTIONAMIDE [Concomitant]
     Active Substance: PROTIONAMIDE
     Indication: Meningitis tuberculous
     Dosage: 0.6 GRAM, QD EVERY 1 DAY
     Route: 048
  14. PROTIONAMIDE [Concomitant]
     Active Substance: PROTIONAMIDE
     Indication: Pulmonary tuberculosis
  15. PYRAZINAMIDE [Concomitant]
     Active Substance: PYRAZINAMIDE
     Indication: Pulmonary tuberculosis
     Dosage: 1 GRAM, QD EVERY 1 DAY
     Route: 048
  16. PYRAZINAMIDE [Concomitant]
     Active Substance: PYRAZINAMIDE
     Indication: Meningitis tuberculous
  17. RIFAMPIN [Concomitant]
     Active Substance: RIFAMPIN
     Indication: Pulmonary tuberculosis
     Dosage: 0.45 GRAM, QD EVERY 1 DAY
     Route: 048
  18. RIFAMPIN [Concomitant]
     Active Substance: RIFAMPIN
     Indication: Meningitis tuberculous
  19. VITAMIN B6 [Concomitant]
     Active Substance: PYRIDOXINE HYDROCHLORIDE
     Indication: Meningitis tuberculous
     Dosage: 100 MILLIGRAM, QD EVERY 1 DAY
     Route: 065
  20. VITAMIN B6 [Concomitant]
     Active Substance: PYRIDOXINE HYDROCHLORIDE
     Indication: Pulmonary tuberculosis

REACTIONS (2)
  - Neuropathy peripheral [Not Recovered/Not Resolved]
  - Visual acuity reduced [Recovered/Resolved]

NARRATIVE: CASE EVENT DATE: 20200901
